FAERS Safety Report 7968816-2 (Version None)
Quarter: 2011Q4

REPORT INFORMATION
  Report Type: 
  Country: None (occurrence: None)
  Receive Date: 20111209
  Receipt Date: 20111128
  Transmission Date: 20120403
  Serious: Yes (Hospitalization)
  Sender: FDA-Public Use
  Company Number: PHHY2011FR12237

PATIENT
  Sex: Male
  Weight: 58 kg

DRUGS (4)
  1. EXJADE [Suspect]
     Indication: CONGENITAL APLASTIC ANAEMIA
     Dosage: 1000 MG, DAILY
     Route: 048
     Dates: start: 20100929
  2. EXJADE [Suspect]
     Indication: HAEMOCHROMATOSIS
     Dosage: 1625 MG DAILY
     Route: 048
     Dates: start: 20080801, end: 20100701
  3. LEVOTHYROXINE SODIUM [Concomitant]
     Indication: HYPOPARATHYROIDISM
     Dosage: 150 MG DAILY
  4. DEPAKENE [Concomitant]
     Indication: EPILEPSY
     Dosage: 500 MG DAILY

REACTIONS (4)
  - RENAL FAILURE ACUTE [None]
  - NEPHROPATHY TOXIC [None]
  - PYREXIA [None]
  - INFECTION [None]
